FAERS Safety Report 6934121-6 (Version None)
Quarter: 2010Q3

REPORT INFORMATION
  Report Type: 
  Country: None (occurrence: None)
  Receive Date: 20100820
  Receipt Date: 20100811
  Transmission Date: 20110219
  Serious: Yes (Hospitalization)
  Sender: FDA-Public Use
  Company Number: US-BAYER-201036162GPV

PATIENT
  Sex: Female

DRUGS (2)
  1. ASPIRIN [Suspect]
     Indication: SUICIDE ATTEMPT
  2. SLEEP AID [Suspect]
     Indication: SUICIDE ATTEMPT

REACTIONS (3)
  - DEHYDRATION [None]
  - FATIGUE [None]
  - INTERNAL INJURY [None]
